FAERS Safety Report 6795185-6 (Version None)
Quarter: 2010Q2

REPORT INFORMATION
  Report Type: 
  Country: None (occurrence: None)
  Receive Date: 20100625
  Receipt Date: 20100610
  Transmission Date: 20101027
  Serious: Yes (Other)
  Sender: FDA-Public Use
  Company Number: US-ROCHE-710764

PATIENT
  Sex: Female
  Weight: 50 kg

DRUGS (8)
  1. BONIVA [Suspect]
     Indication: OSTEOPOROSIS
     Route: 048
     Dates: start: 20030101, end: 20100610
  2. OMEPRAZOLE [Concomitant]
  3. COUMADIN [Concomitant]
  4. ALDACTONE [Concomitant]
  5. DIGOXIN [Concomitant]
     Dosage: DRUG: DIGIXON
  6. ADVAIR DISKUS 100/50 [Concomitant]
  7. FLONASE [Concomitant]
  8. ALLEGRA [Concomitant]

REACTIONS (3)
  - DEVICE MALFUNCTION [None]
  - LOOSE TOOTH [None]
  - TOOTH LOSS [None]
